FAERS Safety Report 6726437-3 (Version None)
Quarter: 2010Q2

REPORT INFORMATION
  Report Type: 
  Country: None (occurrence: None)
  Receive Date: 20100514
  Receipt Date: 20100505
  Transmission Date: 20101027
  Serious: Yes (Other)
  Sender: FDA-Public Use
  Company Number: US-ABBOTT-10P-163-0641127-00

PATIENT
  Sex: Female
  Weight: 103.97 kg

DRUGS (9)
  1. NIASPAN [Suspect]
     Indication: DRUG USE FOR UNKNOWN INDICATION
     Route: 048
     Dates: start: 20100407, end: 20100504
  2. ASPIRIN [Concomitant]
     Indication: DRUG USE FOR UNKNOWN INDICATION
     Dosage: UNKNOWN
     Route: 048
  3. LIOTHYRONINE SODIUM [Concomitant]
     Indication: DRUG USE FOR UNKNOWN INDICATION
     Route: 048
  4. PRAVASTATIN [Concomitant]
     Indication: DRUG USE FOR UNKNOWN INDICATION
     Route: 048
  5. UNKNOWN MEDICATIONS [Concomitant]
     Indication: SUPPLEMENTATION THERAPY
     Route: 048
  6. ASPIRIN [Concomitant]
     Dates: start: 20100504
  7. ASPIRIN [Concomitant]
     Dates: start: 20100407, end: 20100504
  8. SYNTHROID [Concomitant]
     Indication: DRUG USE FOR UNKNOWN INDICATION
  9. BENICAR [Concomitant]
     Indication: DRUG USE FOR UNKNOWN INDICATION
     Dosage: TAKES 1/2 PILL
     Dates: end: 20100404

REACTIONS (13)
  - BLOOD PRESSURE INCREASED [None]
  - BURNING SENSATION [None]
  - DIPLOPIA [None]
  - EAR DISCOMFORT [None]
  - ERYTHEMA [None]
  - FLUSHING [None]
  - HEART RATE INCREASED [None]
  - MYALGIA [None]
  - OEDEMA PERIPHERAL [None]
  - PARAESTHESIA [None]
  - SOMNOLENCE [None]
  - TRANSIENT ISCHAEMIC ATTACK [None]
  - VISION BLURRED [None]
